FAERS Safety Report 13094852 (Version 1)
Quarter: 2017Q1

REPORT INFORMATION
  Report Type: Spontaneous
  Country: US (occurrence: US)
  Receive Date: 20170106
  Receipt Date: 20170106
  Transmission Date: 20170428
  Serious: Yes (Other)
  Sender: FDA-Public Use
  Company Number: US-PRESTIGE BRANDS -1061662

PATIENT
  Age: 41 Year
  Sex: Male

DRUGS (3)
  1. SINGULAIR [Concomitant]
     Active Substance: MONTELUKAST SODIUM
  2. BC (ASPIRIN\CAFFEINE) [Suspect]
     Active Substance: ASPIRIN\CAFFEINE
     Indication: HEADACHE
     Route: 048
  3. SLEEP AID [Concomitant]
     Active Substance: DIPHENHYDRAMINE HYDROCHLORIDE\DOXYLAMINE SUCCINATE

REACTIONS (5)
  - Incorrect drug administration duration [Not Recovered/Not Resolved]
  - Gastric disorder [Not Recovered/Not Resolved]
  - Dependence [Not Recovered/Not Resolved]
  - Toothache [Not Recovered/Not Resolved]
  - Headache [None]
